FAERS Safety Report 6477989-2 (Version None)
Quarter: 2009Q4

REPORT INFORMATION
  Report Type: 
  Country: None (occurrence: None)
  Receive Date: 20091207
  Receipt Date: 20091126
  Transmission Date: 20100525
  Serious: Yes (Death)
  Sender: FDA-Public Use
  Company Number: B0607152A

PATIENT
  Age: 53 Year
  Sex: Male

DRUGS (5)
  1. MELPHALAN [Suspect]
     Indication: CHEMOTHERAPY
  2. CYCLOPHOSPHAMIDE [Suspect]
  3. VINCRISTINE [Suspect]
  4. LOMUSTINE [Suspect]
  5. PREDNISONE [Suspect]

REACTIONS (3)
  - CARDIAC FAILURE [None]
  - CARDIOVASCULAR INSUFFICIENCY [None]
  - DRUG INEFFECTIVE [None]
